FAERS Safety Report 9633864 (Version 2)
Quarter: 2013Q4

REPORT INFORMATION
  Report Type: Spontaneous
  Country: FR (occurrence: FR)
  Receive Date: 20131021
  Receipt Date: 20131021
  Transmission Date: 20140711
  Serious: No
  Sender: FDA-Public Use
  Company Number: FR-ASTRAZENECA-2013SE20977

PATIENT
  Age: 84 Year
  Sex: Female

DRUGS (4)
  1. FLODIL LP [Suspect]
     Indication: HYPERTENSION
     Route: 048
     Dates: start: 20130326, end: 20130402
  2. VALSARTAN [Concomitant]
     Indication: HYPERTENSION
  3. AMLODIPINE [Concomitant]
     Indication: HYPERTENSION
     Route: 048
     Dates: end: 20130326
  4. EXFORGE [Concomitant]
     Indication: HYPERTENSION
     Dosage: 5/90 ONE PER DAY
     Route: 048

REACTIONS (4)
  - Hypertension [Unknown]
  - Dizziness [Unknown]
  - Fatigue [Unknown]
  - Palpitations [Unknown]
